FAERS Safety Report 25395320 (Version 1)
Quarter: 2025Q2

REPORT INFORMATION
  Report Type: Spontaneous
  Country: BR (occurrence: BR)
  Receive Date: 20250604
  Receipt Date: 20250604
  Transmission Date: 20250716
  Serious: Yes (Other)
  Sender: STRIDES
  Company Number: BR-STRIDES ARCOLAB LIMITED-2025SP006815

PATIENT
  Age: 42 Year
  Sex: Male

DRUGS (16)
  1. ACETAZOLAMIDE [Suspect]
     Active Substance: ACETAZOLAMIDE
     Indication: Iris transillumination defect
     Route: 048
  2. ACETAZOLAMIDE [Suspect]
     Active Substance: ACETAZOLAMIDE
     Indication: Pigmentary glaucoma
  3. TIMOLOL MALEATE [Suspect]
     Active Substance: TIMOLOL MALEATE
     Indication: Iris transillumination defect
     Route: 065
  4. TIMOLOL MALEATE [Suspect]
     Active Substance: TIMOLOL MALEATE
     Indication: Pigmentary glaucoma
  5. MANNITOL [Suspect]
     Active Substance: MANNITOL
     Indication: Iris transillumination defect
     Route: 042
  6. MANNITOL [Suspect]
     Active Substance: MANNITOL
     Indication: Pigmentary glaucoma
  7. BRIMONIDINE TARTRATE [Suspect]
     Active Substance: BRIMONIDINE TARTRATE
     Indication: Iris transillumination defect
     Route: 065
  8. BRIMONIDINE TARTRATE [Suspect]
     Active Substance: BRIMONIDINE TARTRATE
     Indication: Pigmentary glaucoma
  9. LATANOPROST [Suspect]
     Active Substance: LATANOPROST
     Indication: Iris transillumination defect
     Route: 065
  10. LATANOPROST [Suspect]
     Active Substance: LATANOPROST
     Indication: Pigmentary glaucoma
  11. VALACYCLOVIR [Concomitant]
     Active Substance: VALACYCLOVIR HYDROCHLORIDE
     Indication: Antiviral treatment
     Route: 065
  12. MOXIFLOXACIN [Concomitant]
     Active Substance: MOXIFLOXACIN
     Indication: Sinusitis
     Route: 065
  13. DORZOLAMIDE HYDROCHLORIDE\TIMOLOL MALEATE [Concomitant]
     Active Substance: DORZOLAMIDE HYDROCHLORIDE\TIMOLOL MALEATE
     Indication: Pigmentary glaucoma
     Route: 065
  14. DORZOLAMIDE HYDROCHLORIDE\TIMOLOL MALEATE [Concomitant]
     Active Substance: DORZOLAMIDE HYDROCHLORIDE\TIMOLOL MALEATE
     Indication: Iris transillumination defect
  15. PILOCARPINE [Concomitant]
     Active Substance: PILOCARPINE
     Indication: Pigmentary glaucoma
     Route: 065
  16. PILOCARPINE [Concomitant]
     Active Substance: PILOCARPINE
     Indication: Iris transillumination defect

REACTIONS (3)
  - Condition aggravated [Unknown]
  - Drug ineffective [Unknown]
  - Drug ineffective for unapproved indication [Unknown]
